FAERS Safety Report 7759773-2 (Version None)
Quarter: 2011Q3

REPORT INFORMATION
  Report Type: 
  Country: None (occurrence: None)
  Receive Date: 20110915
  Receipt Date: 20110906
  Transmission Date: 20111222
  Serious: Yes (Other)
  Sender: FDA-Public Use
  Company Number: DE-GDP-11411582

PATIENT
  Sex: Female

DRUGS (1)
  1. ORACEA [Suspect]
     Indication: ROSACEA
     Dosage: (40 MG QD ORAL)
     Route: 048
     Dates: start: 20110501, end: 20110601

REACTIONS (2)
  - CONDITION AGGRAVATED [None]
  - DEPRESSION [None]
